FAERS Safety Report 8576015-9 (Version None)
Quarter: 2012Q3

REPORT INFORMATION
  Report Type: 
  Country: None (occurrence: None)
  Receive Date: 20120807
  Receipt Date: 20120803
  Transmission Date: 20120928
  Serious: Yes (Life-Threatening)
  Sender: FDA-Public Use
  Company Number: JP-PFIZER INC-2012172817

PATIENT
  Age: 93 Year
  Sex: Male

DRUGS (9)
  1. LANSOPRAZOLE [Concomitant]
     Dosage: 30 MG, DAILY
     Route: 048
  2. URSO 250 [Concomitant]
     Route: 048
  3. ALDACTONE [Suspect]
     Indication: HYPERTENSION
     Dosage: 25 MG, 1X/DAY (MORNING AFTER BREAKFAST)
     Route: 048
     Dates: start: 20120713
  4. TAMSULOSIN HCL [Concomitant]
     Route: 048
  5. HOKUNALIN [Concomitant]
  6. GRAMALIL [Concomitant]
     Dosage: 25 MG, DAILY
     Route: 048
  7. UBRETID [Concomitant]
     Route: 048
  8. FERROUS CITRATE [Concomitant]
     Dosage: 150 MG, DAILY
     Route: 048
  9. FUROSEMIDE [Concomitant]
     Dosage: 10 MG, DAILY
     Route: 048

REACTIONS (1)
  - HYPOGLYCAEMIA [None]
